FAERS Safety Report 7978466-X (Version None)
Quarter: 2011Q4

REPORT INFORMATION
  Report Type: 
  Country: None (occurrence: None)
  Receive Date: 20111214
  Receipt Date: 20111202
  Transmission Date: 20120403
  Serious: Yes (Hospitalization)
  Sender: FDA-Public Use
  Company Number: US-ELI_LILLY_AND_COMPANY-US201112001607

PATIENT
  Age: 27 Year
  Sex: Female

DRUGS (5)
  1. XANAX                                   /USA/ [Concomitant]
  2. ATIVAN [Concomitant]
  3. CYMBALTA [Suspect]
     Indication: MAJOR DEPRESSION
     Dosage: 60 MG, UNKNOWN
     Dates: start: 20111001
  4. BUSPAR [Concomitant]
  5. ALCOHOL [Concomitant]

REACTIONS (2)
  - MANIA [None]
  - BIPOLAR DISORDER [None]
